FAERS Safety Report 6795314-4 (Version None)
Quarter: 2010Q2

REPORT INFORMATION
  Report Type: 
  Country: None (occurrence: None)
  Receive Date: 20100625
  Receipt Date: 20100618
  Transmission Date: 20101027
  Serious: Yes (Hospitalization)
  Sender: FDA-Public Use
  Company Number: GB-PFIZER INC-2010076758

PATIENT
  Age: 60 Year
  Sex: Male

DRUGS (8)
  1. ATORVASTATIN CALCIUM [Suspect]
     Dosage: UNK
  2. ATORVASTATIN CALCIUM [Suspect]
     Dosage: UNK
  3. SIMVASTATIN [Suspect]
     Dosage: UNK
     Route: 048
     Dates: start: 20070101
  4. ACETYLSALICYLIC ACID [Concomitant]
     Dosage: UNK
     Dates: start: 20070101
  5. GLICLAZIDE [Concomitant]
     Dosage: UNK
     Dates: start: 20070101
  6. GLICLAZIDE [Concomitant]
     Dosage: UNK
  7. RAMIPRIL [Concomitant]
     Dosage: UNK
     Dates: start: 20070101
  8. RAMIPRIL [Concomitant]
     Dosage: UNK

REACTIONS (4)
  - BLOOD CREATINE PHOSPHOKINASE INCREASED [None]
  - MUSCULAR WEAKNESS [None]
  - MYALGIA [None]
  - MYASTHENIA GRAVIS [None]
